FAERS Safety Report 7604924-3 (Version None)
Quarter: 2011Q3

REPORT INFORMATION
  Report Type: 
  Country: None (occurrence: None)
  Receive Date: 20110713
  Receipt Date: 20110630
  Transmission Date: 20111222
  Serious: Yes (Hospitalization)
  Sender: FDA-Public Use
  Company Number: JP-BRISTOL-MYERS SQUIBB COMPANY-15895824

PATIENT
  Age: 2 Year
  Sex: Male

DRUGS (8)
  1. LOCOID [Concomitant]
     Indication: ECZEMA INFANTILE
     Route: 061
     Dates: start: 20100611
  2. BUFEXAMAC [Concomitant]
     Indication: ECZEMA INFANTILE
     Route: 061
     Dates: start: 20100611
  3. TORSEMIDE [Suspect]
     Route: 064
     Dates: end: 20090318
  4. BENZBROMARONE [Suspect]
     Route: 064
  5. BARACLUDE [Suspect]
     Route: 064
     Dates: end: 20090318
  6. FAMOTIDINE [Suspect]
     Route: 064
     Dates: end: 20090119
  7. ROSUVASTATIN CALCIUM [Suspect]
     Route: 064
     Dates: end: 20090119
  8. ALLOPURINOL [Suspect]
     Route: 064

REACTIONS (3)
  - NEONATAL TACHYPNOEA [None]
  - PREMATURE BABY [None]
  - SMALL FOR DATES BABY [None]
